FAERS Safety Report 7215875-0 (Version None)
Quarter: 2011Q1

REPORT INFORMATION
  Report Type: 
  Country: None (occurrence: None)
  Receive Date: 20110104
  Receipt Date: 20110104
  Transmission Date: 20110831
  Serious: Yes (Other)
  Sender: FDA-Public Use
  Company Number: None

PATIENT
  Age: 27 Year
  Sex: Female
  Weight: 63.5036 kg

DRUGS (4)
  1. CYMBALTA [Suspect]
     Indication: AFFECTIVE DISORDER
     Dosage: 1CAPSULE ONCE A DAY PO : 30 MG TWICE A DAY : 60 MG ONCE A DAY
     Route: 048
     Dates: start: 20101001, end: 20101219
  2. CYMBALTA [Suspect]
     Indication: FIBROMYALGIA
     Dosage: 1CAPSULE ONCE A DAY PO : 30 MG TWICE A DAY : 60 MG ONCE A DAY
     Route: 048
     Dates: start: 20101001, end: 20101219
  3. CYMBALTA [Suspect]
     Indication: AFFECTIVE DISORDER
     Dosage: 1CAPSULE ONCE A DAY PO : 30 MG TWICE A DAY : 60 MG ONCE A DAY
     Route: 048
     Dates: start: 20100601, end: 20101001
  4. CYMBALTA [Suspect]
     Indication: FIBROMYALGIA
     Dosage: 1CAPSULE ONCE A DAY PO : 30 MG TWICE A DAY : 60 MG ONCE A DAY
     Route: 048
     Dates: start: 20100601, end: 20101001

REACTIONS (20)
  - EMOTIONAL DISORDER [None]
  - DRUG WITHDRAWAL SYNDROME [None]
  - NERVOUSNESS [None]
  - HYPERHIDROSIS [None]
  - VOMITING [None]
  - PERSONALITY CHANGE [None]
  - ECONOMIC PROBLEM [None]
  - MOOD ALTERED [None]
  - DIARRHOEA [None]
  - FEELING OF BODY TEMPERATURE CHANGE [None]
  - RETCHING [None]
  - SUICIDAL IDEATION [None]
  - LIBIDO DECREASED [None]
  - ONYCHOPHAGIA [None]
  - PARAESTHESIA [None]
  - NAUSEA [None]
  - IRRITABILITY [None]
  - DRUG DEPENDENCE [None]
  - ANGER [None]
  - DEPRESSED MOOD [None]
